FAERS Safety Report 7088644-2 (Version None)
Quarter: 2010Q4

REPORT INFORMATION
  Report Type: 
  Country: None (occurrence: None)
  Receive Date: 20101108
  Receipt Date: 20101101
  Transmission Date: 20110411
  Serious: Yes (Death)
  Sender: FDA-Public Use
  Company Number: JP-BAYER-201014339BYL

PATIENT
  Age: 63 Year
  Sex: Male
  Weight: 49 kg

DRUGS (3)
  1. NEXAVAR [Suspect]
     Indication: HEPATIC NEOPLASM MALIGNANT
     Dosage: TOTAL DAILY DOSE: 800 MG  UNIT DOSE: 200 MG
     Route: 048
     Dates: start: 20100817, end: 20100822
  2. ACINON [Concomitant]
     Indication: GASTRITIS
     Dosage: UNIT DOSE: 150 MG
     Route: 048
     Dates: start: 20050501, end: 20100822
  3. BARACLUDE [Concomitant]
     Indication: HEPATITIS B
     Dosage: UNIT DOSE: 0.5 MG
     Route: 048
     Dates: start: 20071201, end: 20100822

REACTIONS (1)
  - LIVER DISORDER [None]
